FAERS Safety Report 13675903 (Version 1)
Quarter: 2017Q2

REPORT INFORMATION
  Report Type: Spontaneous
  Country: US (occurrence: US)
  Receive Date: 20170620
  Receipt Date: 20170620
  Transmission Date: 20170830
  Serious: Yes (Hospitalization)
  Sender: FDA-Public Use
  Company Number: None

PATIENT
  Age: 77 Year
  Sex: Male
  Weight: 107.5 kg

DRUGS (21)
  1. ACETAMINOPHEN. [Concomitant]
     Active Substance: ACETAMINOPHEN
  2. BENADRYL [Concomitant]
     Active Substance: DIPHENHYDRAMINE HYDROCHLORIDE
  3. LUPRON DEPOT [Concomitant]
     Active Substance: LEUPROLIDE ACETATE
  4. VITAMIN C [Concomitant]
     Active Substance: ASCORBIC ACID
  5. SIPULEUCEL-T 50 MILLION AUTOLOGOUS CELLS [Suspect]
     Active Substance: SIPULEUCEL-T
     Indication: PROSTATE CANCER
     Dosage: ?          OTHER FREQUENCY:WEEKLY;?
     Route: 041
     Dates: start: 20170616, end: 20170616
  6. FERROUS SULFATE. [Concomitant]
     Active Substance: FERROUS SULFATE
  7. PROLIA [Concomitant]
     Active Substance: DENOSUMAB
  8. TOUJEO [Concomitant]
     Active Substance: INSULIN GLARGINE
  9. ASPIRIN. [Concomitant]
     Active Substance: ASPIRIN
  10. DOCUSATE SODIUM. [Concomitant]
     Active Substance: DOCUSATE SODIUM
  11. CRESTOR [Concomitant]
     Active Substance: ROSUVASTATIN CALCIUM
  12. VITAMIN D3 [Concomitant]
     Active Substance: CHOLECALCIFEROL
  13. FINASTERIDE. [Concomitant]
     Active Substance: FINASTERIDE
  14. LISINOPRIL. [Concomitant]
     Active Substance: LISINOPRIL
  15. CITALOPRAM HYDROBROMIDE. [Concomitant]
     Active Substance: CITALOPRAM HYDROBROMIDE
  16. CLONAZEPAM. [Concomitant]
     Active Substance: CLONAZEPAM
  17. CARVEDILOL. [Concomitant]
     Active Substance: CARVEDILOL
  18. HUMALOG [Concomitant]
     Active Substance: INSULIN LISPRO
  19. MULTIVITAMIN [Concomitant]
     Active Substance: VITAMINS
  20. RANITIDINE. [Concomitant]
     Active Substance: RANITIDINE
  21. CALCIUM CITRATE +D [Concomitant]
     Active Substance: CALCIUM CITRATE\VITAMIN D

REACTIONS (5)
  - Pyrexia [None]
  - Chills [None]
  - Asthenia [None]
  - Vomiting [None]
  - Nausea [None]

NARRATIVE: CASE EVENT DATE: 20170616
